FAERS Safety Report 6302230-0 (Version None)
Quarter: 2009Q3

REPORT INFORMATION
  Report Type: 
  Country: None (occurrence: None)
  Receive Date: 20090810
  Receipt Date: 20090731
  Transmission Date: 20100115
  Serious: Yes (Hospitalization)
  Sender: FDA-Public Use
  Company Number: US-BIOGENIDEC-2009BI024276

PATIENT
  Sex: Female

DRUGS (3)
  1. AVONEX [Suspect]
     Indication: MULTIPLE SCLEROSIS
     Route: 030
     Dates: start: 19990908, end: 19991101
  2. AVONEX [Suspect]
     Route: 030
     Dates: start: 19991101
  3. AVONEX [Suspect]
     Route: 030
     Dates: start: 20090212

REACTIONS (1)
  - CEREBROVASCULAR ACCIDENT [None]
